FAERS Safety Report 11776801 (Version 1)
Quarter: 2015Q4

REPORT INFORMATION
  Report Type: Spontaneous
  Country: US (occurrence: US)
  Receive Date: 20151125
  Receipt Date: 20151125
  Transmission Date: 20160304
  Serious: No
  Sender: FDA-Public Use
  Company Number: US-TEVA-544162USA

PATIENT
  Age: 71 Year
  Sex: Male

DRUGS (1)
  1. BUDESONIDE. [Suspect]
     Active Substance: BUDESONIDE
     Indication: NASAL CONGESTION
     Route: 055
     Dates: start: 201502, end: 20150217

REACTIONS (3)
  - Drug administered in wrong device [Unknown]
  - Contusion [Unknown]
  - Rash macular [Unknown]

NARRATIVE: CASE EVENT DATE: 20150215
